FAERS Safety Report 23646347 (Version 1)
Quarter: 2024Q1

REPORT INFORMATION
  Report Type: Spontaneous
  Country: ES (occurrence: ES)
  Receive Date: 20240319
  Receipt Date: 20240319
  Transmission Date: 20240410
  Serious: Yes (Other)
  Sender: FDA-Public Use
  Company Number: ES-AEMPS-1494876

PATIENT
  Age: 35 Year
  Sex: Female

DRUGS (5)
  1. METRONIDAZOLE [Suspect]
     Active Substance: METRONIDAZOLE
     Indication: Vulvovaginal injury
     Dosage: 500 MILLIGRAM, 3 TIMES A DAY 1-1-1(*Q8H)
     Route: 042
     Dates: start: 20230509, end: 20230512
  2. CEFTRIAXONE [Suspect]
     Active Substance: CEFTRIAXONE\CEFTRIAXONE SODIUM
     Indication: Vulvovaginal injury
     Dosage: 2 GRAM (DOSIS ?NICA)
     Route: 042
     Dates: start: 20230509, end: 20230509
  3. CLINDAMYCIN HYDROCHLORIDE [Suspect]
     Active Substance: CLINDAMYCIN HYDROCHLORIDE
     Indication: Vulvovaginal injury
     Dosage: 600 MILLIGRAM, 3 TIMES A DAY (*Q8H)
     Route: 042
     Dates: start: 20230508, end: 20230509
  4. BENCILPENICILINA [Concomitant]
     Indication: Vulvovaginal injury
     Dosage: UNK (5000 U DOSIS ?NICA)
     Route: 042
     Dates: start: 20230508, end: 20230508
  5. GENTAMICIN [Concomitant]
     Active Substance: GENTAMICIN
     Indication: Vulvovaginal injury
     Dosage: 240 MILLIGRAM, 3 TIMES A DAY (*Q8H)
     Route: 042
     Dates: start: 20230508, end: 20230508

REACTIONS (1)
  - Hepatitis cholestatic [Recovered/Resolved]

NARRATIVE: CASE EVENT DATE: 20230512
